FAERS Safety Report 7635220-6 (Version None)
Quarter: 2011Q3

REPORT INFORMATION
  Report Type: 
  Country: None (occurrence: None)
  Receive Date: 20110726
  Receipt Date: 20080811
  Transmission Date: 20111222
  Serious: Yes (Death, Other)
  Sender: FDA-Public Use
  Company Number: US-BAYER-200827974NA

PATIENT
  Age: 63 Year
  Sex: Female
  Weight: 110 kg

DRUGS (20)
  1. MAGNEVIST [Suspect]
     Dates: start: 20040108, end: 20040108
  2. OPTIMARK [Suspect]
     Indication: NUCLEAR MAGNETIC RESONANCE IMAGING
  3. MULTIHANCE [Suspect]
     Indication: NUCLEAR MAGNETIC RESONANCE IMAGING
  4. COUMADIN [Concomitant]
  5. ATACAND [CANDESARTAN CILEXETIL,HYDROCHLOROTHIAZIDE] [Concomitant]
  6. MAGNEVIST [Suspect]
     Indication: NUCLEAR MAGNETIC RESONANCE IMAGING BRAIN
     Dosage: 20 ML, ONCE
     Dates: start: 20030325, end: 20030325
  7. MAGNEVIST [Suspect]
  8. PROHANCE [Suspect]
     Indication: NUCLEAR MAGNETIC RESONANCE IMAGING
  9. RENAGEL [Concomitant]
  10. MAGNEVIST [Suspect]
     Dosage: 20 ML, ONCE
     Route: 042
     Dates: start: 19971209, end: 19971209
  11. NEPHROCAPS [Concomitant]
  12. NORVASC [Concomitant]
  13. MAGNEVIST [Suspect]
     Indication: NUCLEAR MAGNETIC RESONANCE IMAGING
     Dosage: 20 ML, ONCE
     Dates: start: 19960824, end: 19960824
  14. MAGNEVIST [Suspect]
     Dosage: 40 ML, ONCE
     Dates: start: 20040101, end: 20040101
  15. TOPROL-XL [Concomitant]
  16. MAGNEVIST [Suspect]
     Indication: ANGIOGRAM
     Dosage: UNK, ONCE
     Dates: start: 20040108, end: 20040108
  17. OMNISCAN [Suspect]
     Indication: NUCLEAR MAGNETIC RESONANCE IMAGING
  18. MAGNEVIST [Suspect]
     Dosage: UNK
     Dates: start: 20040108
  19. HUMALIN [Concomitant]
  20. LIPITOR [Concomitant]

REACTIONS (22)
  - FIBROSIS [None]
  - EMOTIONAL DISTRESS [None]
  - PRURITUS [None]
  - NEPHROGENIC SYSTEMIC FIBROSIS [None]
  - SKIN HYPERTROPHY [None]
  - TREMOR [None]
  - HYPOAESTHESIA [None]
  - SKIN DISCOLOURATION [None]
  - EXTREMITY CONTRACTURE [None]
  - INJURY [None]
  - ANXIETY [None]
  - QUALITY OF LIFE DECREASED [None]
  - SCAR [None]
  - AMPUTATION [None]
  - SKIN SWELLING [None]
  - SKIN BURNING SENSATION [None]
  - ANHEDONIA [None]
  - PAIN [None]
  - ASTHENIA [None]
  - FATIGUE [None]
  - ERYTHEMA [None]
  - ULCER [None]
